FAERS Safety Report 9789965 (Version 3)
Quarter: 2014Q1

REPORT INFORMATION
  Report Type: Spontaneous
  Country: DE (occurrence: None)
  Receive Date: 20131227
  Receipt Date: 20140122
  Transmission Date: 20141002
  Serious: Yes (Hospitalization)
  Sender: FDA-Public Use
  Company Number: 2013MPI00832

PATIENT
  Age: 24 Year
  Sex: Female

DRUGS (6)
  1. BRENTUXIMAB VEDOTIN [Suspect]
     Indication: HODGKIN^S DISEASE
     Route: 042
     Dates: start: 20131004, end: 20131115
  2. ETOPOSIDE [Suspect]
     Indication: HODGKIN^S DISEASE
     Dates: start: 201310, end: 20131118
  3. CYCLOPHOSPHAMIDE [Suspect]
     Indication: HODGKIN^S DISEASE
     Dates: start: 201310, end: 20131116
  4. DOXORUBICIN [Suspect]
     Indication: HODGKIN^S DISEASE
     Dates: start: 201310, end: 20131116
  5. PROCARBAZINE (PROCARBAZINE) [Suspect]
     Indication: HODGKIN^S DISEASE
     Dates: start: 201310, end: 20131122
  6. PREDNISONE [Suspect]
     Indication: HODGKIN^S DISEASE
     Dates: start: 201310, end: 20131129

REACTIONS (1)
  - Herpes zoster [None]
